FAERS Safety Report 7623331-0 (Version None)
Quarter: 2011Q3

REPORT INFORMATION
  Report Type: 
  Country: None (occurrence: None)
  Receive Date: 20110720
  Receipt Date: 20110711
  Transmission Date: 20111222
  Serious: Yes (Other)
  Sender: FDA-Public Use
  Company Number: JP-JNJFOC-20110104596

PATIENT
  Age: 34 Year
  Sex: Female
  Weight: 60 kg

DRUGS (11)
  1. REMICADE [Suspect]
     Route: 042
     Dates: start: 20100408
  2. PREDNISOLONE [Concomitant]
     Indication: LUPUS-LIKE SYNDROME
     Route: 048
     Dates: start: 20100524
  3. REMICADE [Suspect]
     Indication: CROHN'S DISEASE
     Route: 042
     Dates: start: 20090610
  4. PENTASA [Concomitant]
     Indication: CROHN'S DISEASE
     Route: 048
     Dates: start: 20100610
  5. DAI-KENCHU-TO [Concomitant]
     Indication: CROHN'S DISEASE
     Route: 048
     Dates: start: 20100610
  6. REMICADE [Suspect]
     Route: 042
     Dates: start: 20090722
  7. REMICADE [Suspect]
     Route: 042
     Dates: start: 20100204
  8. RIZABEN [Concomitant]
     Indication: CROHN'S DISEASE
     Route: 048
     Dates: start: 20100610
  9. REMICADE [Suspect]
     Route: 042
     Dates: start: 20091203
  10. REMICADE [Suspect]
     Route: 042
     Dates: start: 20090624
  11. REMICADE [Suspect]
     Route: 042
     Dates: start: 20091001

REACTIONS (1)
  - LUPUS-LIKE SYNDROME [None]
